FAERS Safety Report 22523236 (Version 2)
Quarter: 2023Q2

REPORT INFORMATION
  Report Type: Report from Study
  Country: US (occurrence: US)
  Receive Date: 20230606
  Receipt Date: 20230615
  Transmission Date: 20230721
  Serious: Yes (Hospitalization)
  Sender: FDA-Public Use
  Company Number: US-ABBVIE-5275993

PATIENT
  Sex: Male

DRUGS (1)
  1. VENCLEXTA [Suspect]
     Active Substance: VENETOCLAX
     Indication: Myelodysplastic syndrome
     Dosage: LAST ADMIN DATE 2023
     Route: 048
     Dates: start: 20230515

REACTIONS (6)
  - Platelet disorder [Unknown]
  - Fall [Unknown]
  - Off label use [Unknown]
  - Illness [Unknown]
  - Blood disorder [Unknown]
  - Gait inability [Unknown]

NARRATIVE: CASE EVENT DATE: 20230101
